FAERS Safety Report 13247765 (Version 2)
Quarter: 2017Q1

REPORT INFORMATION
  Report Type: Spontaneous
  Country: JP (occurrence: JP)
  Receive Date: 20170217
  Receipt Date: 20170329
  Transmission Date: 20170428
  Serious: Yes (Hospitalization)
  Sender: FDA-Public Use
  Company Number: JP-MYLANLABS-2017M1009274

PATIENT

DRUGS (3)
  1. MECOBALAMIN [Suspect]
     Active Substance: METHYLCOBALAMIN
     Indication: SUDDEN HEARING LOSS
     Route: 065
  2. PREDNISOLONE. [Suspect]
     Active Substance: PREDNISOLONE
     Indication: SUDDEN HEARING LOSS
     Dosage: 30 MG, QD
     Route: 065
  3. ADENOSINE. [Suspect]
     Active Substance: ADENOSINE
     Indication: SUDDEN HEARING LOSS
     Dosage: UNK
     Route: 065

REACTIONS (3)
  - Deafness [Unknown]
  - Tinnitus [Unknown]
  - Condition aggravated [Unknown]
